FAERS Safety Report 25773925 (Version 2)
Quarter: 2025Q3

REPORT INFORMATION
  Report Type: Spontaneous
  Country: CH (occurrence: CH)
  Receive Date: 20250908
  Receipt Date: 20250916
  Transmission Date: 20251020
  Serious: Yes (Death)
  Sender: ELI LILLY AND COMPANY
  Company Number: CH-ELI_LILLY_AND_COMPANY-CH202509003897

PATIENT
  Age: 59 Year
  Sex: Female

DRUGS (1)
  1. JAYPIRCA [Suspect]
     Active Substance: PIRTOBRUTINIB
     Indication: Product used for unknown indication
     Dosage: 200 MG, DAILY (2 TABLETS OF 100 MG)
     Route: 048

REACTIONS (1)
  - Death [Fatal]
